FAERS Safety Report 5735415-2 (Version None)
Quarter: 2008Q2

REPORT INFORMATION
  Report Type: 
  Country: None (occurrence: None)
  Receive Date: 20080508
  Receipt Date: 20080508
  Transmission Date: 20081010
  Serious: Yes (Other)
  Sender: FDA-Public Use
  Company Number: None

PATIENT
  Age: 80 Year
  Sex: Female

DRUGS (1)
  1. RITUXAN [Suspect]

REACTIONS (3)
  - BACK PAIN [None]
  - ILL-DEFINED DISORDER [None]
  - INFUSION RELATED REACTION [None]
